FAERS Safety Report 9209297 (Version 1)
Quarter: 2013Q2

REPORT INFORMATION
  Report Type: Spontaneous
  Country: US (occurrence: None)
  Receive Date: 20130403
  Receipt Date: 20130403
  Transmission Date: 20140414
  Serious: No
  Sender: FDA-Public Use
  Company Number: None

PATIENT
  Age: 49 Year
  Sex: Female

DRUGS (1)
  1. ASTHMANEFRIN EZ BREATHE ATOMIZER [Suspect]

REACTIONS (6)
  - Product quality issue [None]
  - Product substitution issue [None]
  - Product size issue [None]
  - Device malfunction [None]
  - Drug effect decreased [None]
  - Product packaging quantity issue [None]
